FAERS Safety Report 20430183 (Version 1)
Quarter: 2022Q1

REPORT INFORMATION
  Report Type: Report from Study
  Country: US (occurrence: US)
  Receive Date: 20220204
  Receipt Date: 20220204
  Transmission Date: 20220423
  Serious: Yes (Hospitalization)
  Sender: FDA-Public Use
  Company Number: US-SERVIER-S20000134

PATIENT

DRUGS (22)
  1. ONCASPAR [Suspect]
     Active Substance: PEGASPARGASE
     Indication: Acute lymphocytic leukaemia
     Dosage: 1250 IU/M2, ONE DOSE
     Route: 042
     Dates: start: 20191220, end: 20191220
  2. VENETOCLAX [Suspect]
     Active Substance: VENETOCLAX
     Indication: Acute lymphocytic leukaemia
     Dosage: 200 MG, QD
     Route: 048
     Dates: start: 20191220, end: 20191220
  3. VENETOCLAX [Suspect]
     Active Substance: VENETOCLAX
     Dosage: 400 MG, QD
     Route: 048
     Dates: start: 20191221, end: 20191230
  4. VENETOCLAX [Suspect]
     Active Substance: VENETOCLAX
     Dosage: 200 MG, QD
     Route: 048
     Dates: start: 20200101
  5. NAVITOCLAX [Suspect]
     Active Substance: NAVITOCLAX
     Indication: Acute lymphocytic leukaemia
     Dosage: 50 MG, QD
     Route: 048
     Dates: start: 20191222, end: 20191230
  6. NAVITOCLAX [Suspect]
     Active Substance: NAVITOCLAX
     Dosage: 50 MG, QD
     Route: 048
     Dates: start: 20200101
  7. VINCRISTINE [Suspect]
     Active Substance: VINCRISTINE
     Indication: Acute lymphocytic leukaemia
     Dosage: 1.5 MG/M2, 1X/WEEK
     Route: 042
     Dates: start: 20191220, end: 20191227
  8. DEXAMETHASONE [Concomitant]
     Active Substance: DEXAMETHASONE
     Indication: Acute lymphocytic leukaemia
     Dosage: 40 MG, DAY 1 TO DAY 5 AND DAY 15 TO DAY 19
     Route: 042
     Dates: start: 20191220
  9. FENOFIBRATE [Concomitant]
     Active Substance: FENOFIBRATE
     Indication: Blood cholesterol increased
     Dosage: 54 MG, QD
     Route: 048
     Dates: start: 20191227, end: 20191231
  10. FENOFIBRATE [Concomitant]
     Active Substance: FENOFIBRATE
     Dosage: 48 MG, QD
     Route: 048
     Dates: start: 20191231
  11. TN UNSPECIFIED [Concomitant]
     Indication: Colitis ulcerative
     Dosage: 48000 MG, QD
     Route: 048
     Dates: start: 20181023
  12. TN UNSPECIFIED [Concomitant]
     Dosage: 800 MG, TID
     Route: 048
     Dates: start: 20200109
  13. TN UNSPECIFIED [Concomitant]
     Indication: Viral infection
     Dosage: 500 MG, QD
     Route: 048
     Dates: start: 20190807
  14. TN UNSPECIFIED [Concomitant]
     Indication: Gastrooesophageal reflux disease
     Dosage: 40 MG, QD
     Route: 048
     Dates: start: 20181023, end: 20200109
  15. URSODIOL [Concomitant]
     Active Substance: URSODIOL
     Indication: Prophylaxis
     Dosage: 300 MG, TID
     Route: 048
     Dates: start: 20191009
  16. BACTRIM [Concomitant]
     Active Substance: SULFAMETHOXAZOLE\TRIMETHOPRIM
     Indication: Bacterial infection
     Dosage: 800 MG, QD
     Route: 048
     Dates: start: 20191023
  17. TN UNSPECIFIED [Concomitant]
     Indication: Nausea
     Dosage: 8 MG, PRN
     Dates: start: 20191223
  18. LOMOTIL [Concomitant]
     Active Substance: ATROPINE SULFATE\DIPHENOXYLATE HYDROCHLORIDE
     Indication: Diarrhoea
     Dosage: 2.5 MG, PRN-4 TIMES A DAY
     Route: 048
     Dates: start: 20191227
  19. ALLOPURINOL [Concomitant]
     Active Substance: ALLOPURINOL
     Indication: Tumour lysis syndrome
     Dosage: 300 MG, UNKNOWN
     Route: 048
     Dates: start: 20191219, end: 20200103
  20. TADALAFIL [Concomitant]
     Active Substance: TADALAFIL
     Indication: Erectile dysfunction
     Dosage: 20 MG, PRN
     Route: 048
     Dates: start: 20191023
  21. METOPROLOL [Concomitant]
     Active Substance: METOPROLOL
     Indication: Hypertension
     Dosage: 25 MG, QD
     Route: 048
     Dates: start: 20181023
  22. LOPERAMIDE [Concomitant]
     Active Substance: LOPERAMIDE
     Indication: Diarrhoea
     Dosage: 2 MG, PRN
     Route: 048
     Dates: start: 20200103

REACTIONS (2)
  - Parainfluenzae virus infection [Recovered/Resolved]
  - Asthenia [Recovered/Resolved]

NARRATIVE: CASE EVENT DATE: 20191231
